FAERS Safety Report 26066219 (Version 2)
Quarter: 2025Q4

REPORT INFORMATION
  Report Type: Spontaneous
  Country: EG (occurrence: EG)
  Receive Date: 20251119
  Receipt Date: 20251125
  Transmission Date: 20260118
  Serious: Yes (Other)
  Sender: PFIZER
  Company Number: EG-PFIZER INC-PV202500136100

PATIENT
  Age: 30 Year
  Sex: Female

DRUGS (2)
  1. INLYTA [Suspect]
     Active Substance: AXITINIB
     Dosage: 5 MG, 2X/DAY
     Route: 048
  2. PEMBROLIZUMAB [Concomitant]
     Active Substance: PEMBROLIZUMAB
     Dosage: 200 MG, EVERY 3 WEEKS

REACTIONS (6)
  - Metastases to lung [Not Recovered/Not Resolved]
  - Metastases to liver [Not Recovered/Not Resolved]
  - Thrombosis [Unknown]
  - Metastases to lymph nodes [Unknown]
  - Sarcomatoid carcinoma [Unknown]
  - Haematuria [Unknown]
